FAERS Safety Report 10618108 (Version 1)
Quarter: 2014Q4

REPORT INFORMATION
  Report Type: Spontaneous
  Country: US (occurrence: US)
  Receive Date: 20141202
  Receipt Date: 20141202
  Transmission Date: 20150529
  Serious: Yes (Disabling, Other)
  Sender: FDA-Public Use
  Company Number: US-BEH-2014046242

PATIENT
  Sex: Female
  Weight: 68 kg

DRUGS (26)
  1. CALCIUM + VITAMIN D [Concomitant]
     Active Substance: CALCIUM\VITAMIN D
  2. NORCO [Concomitant]
     Active Substance: ACETAMINOPHEN\HYDROCODONE BITARTRATE
  3. HIZENTRA [Suspect]
     Active Substance: HUMAN IMMUNOGLOBULIN G
     Indication: IMMUNODEFICIENCY COMMON VARIABLE
     Dosage: FIRST DOSE ??-OCT-2014
     Route: 058
  4. CALCITRATE + VIT D [Concomitant]
  5. WELLBUTRIN XL [Concomitant]
     Active Substance: BUPROPION HYDROCHLORIDE
  6. HIZENTRA [Suspect]
     Active Substance: HUMAN IMMUNOGLOBULIN G
     Dosage: FIRST DOSE ??-OCT-2014
     Route: 058
  7. NEXIUM [Concomitant]
     Active Substance: ESOMEPRAZOLE MAGNESIUM
  8. NEURONTIN [Concomitant]
     Active Substance: GABAPENTIN
  9. DIPHENHYDRAMINE [Concomitant]
     Active Substance: DIPHENHYDRAMINE
  10. CENTRUM SILVER ULTRA WOMEN TAB [Concomitant]
  11. ROBAXIN [Concomitant]
     Active Substance: METHOCARBAMOL
  12. LIDOCAINE. [Concomitant]
     Active Substance: LIDOCAINE
  13. XANAX [Concomitant]
     Active Substance: ALPRAZOLAM
  14. ZANTAC [Concomitant]
     Active Substance: RANITIDINE HYDROCHLORIDE
  15. XOPENEX [Concomitant]
     Active Substance: LEVALBUTEROL HYDROCHLORIDE
  16. TRAZODONE [Concomitant]
     Active Substance: TRAZODONE HYDROCHLORIDE
  17. FERROUS SULFATE [Concomitant]
     Active Substance: FERROUS SULFATE\FERROUS SULFATE, DRIED
  18. EPIPEN [Concomitant]
     Active Substance: EPINEPHRINE
  19. TRAVATAN Z [Concomitant]
     Active Substance: TRAVOPROST
  20. RISPERDAL [Concomitant]
     Active Substance: RISPERIDONE
  21. ACETAMINOPHEN. [Concomitant]
     Active Substance: ACETAMINOPHEN
  22. ETODOLAC. [Concomitant]
     Active Substance: ETODOLAC
  23. ASPIRIN. [Concomitant]
     Active Substance: ASPIRIN
  24. MORPHINE [Concomitant]
     Active Substance: MORPHINE
  25. MAGNESIUM [Concomitant]
     Active Substance: MAGNESIUM
  26. ALL OTHER NON-THERAPEUTIC PRODUCTS [Concomitant]
     Active Substance: UNSPECIFIED INGREDIENT

REACTIONS (7)
  - Nausea [Unknown]
  - Asthenia [Unknown]
  - Dyspnoea [Unknown]
  - Back pain [Unknown]
  - Fatigue [Unknown]
  - Affect lability [Unknown]
  - Cough [Unknown]
